FAERS Safety Report 21714413 (Version 1)
Quarter: 2022Q4

REPORT INFORMATION
  Report Type: Spontaneous
  Country: US (occurrence: None)
  Receive Date: 20221209
  Receipt Date: 20221209
  Transmission Date: 20230112
  Serious: Yes (Death)
  Sender: FDA-Public Use
  Company Number: None

PATIENT
  Sex: Male

DRUGS (17)
  1. AMBRISENTAN [Suspect]
     Active Substance: AMBRISENTAN
     Indication: Pulmonary arterial hypertension
     Dosage: FREQUENCY : DAILY;?
     Route: 048
  2. HYDROXYZINE HYDROCHLORIDE [Concomitant]
     Active Substance: HYDROXYZINE HYDROCHLORIDE
  3. ACETAMINOPHEN [Concomitant]
     Active Substance: ACETAMINOPHEN
  4. HERBALS\SAW PALMETTO [Concomitant]
     Active Substance: HERBALS\SAW PALMETTO
  5. ZINC [Concomitant]
     Active Substance: ZINC
  6. HAIR/SKIN/NAILS [Concomitant]
  7. LUTEIN [Concomitant]
     Active Substance: LUTEIN
  8. ASPIRIN [Concomitant]
     Active Substance: ASPIRIN
  9. BUMETANIDE [Concomitant]
     Active Substance: BUMETANIDE
  10. TRAMADOL HCL [Concomitant]
     Active Substance: TRAMADOL HYDROCHLORIDE
  11. SUCRALFATE [Concomitant]
     Active Substance: SUCRALFATE
  12. VITAMINS [Concomitant]
     Active Substance: VITAMINS
  13. METOCLOPRAMIDE HYDROCHLORIDE [Concomitant]
     Active Substance: METOCLOPRAMIDE HYDROCHLORIDE
  14. AMOXICILLIN/CLAVULANATE P [Concomitant]
  15. CALCIUM ANTACID EXTRA STR [Concomitant]
  16. MELATONIN [Concomitant]
     Active Substance: MELATONIN
  17. LANSOPRAZOLE [Concomitant]
     Active Substance: LANSOPRAZOLE

REACTIONS (1)
  - Death [None]
